FAERS Safety Report 4614614-7 (Version None)
Quarter: 2005Q2

REPORT INFORMATION
  Report Type: 
  Country: None (occurrence: None)
  Receive Date: 20050307
  Receipt Date: 20050103
  Transmission Date: 20051028
  Serious: No
  Sender: FDA-Public Use
  Company Number: USA041183226

PATIENT
  Age: 72 Year
  Sex: Male

DRUGS (9)
  1. ALIMTA [Suspect]
     Indication: LUNG NEOPLASM MALIGNANT
     Dosage: 800 MG
     Dates: start: 20041026, end: 20041130
  2. VITAMIN B-12 [Concomitant]
  3. FOLIC ACID [Concomitant]
  4. ALOXI [Concomitant]
  5. COUMADIN [Concomitant]
  6. IRESSA [Concomitant]
  7. METOPROLOL [Concomitant]
  8. PREDNISONE [Concomitant]
  9. DIGOXIN [Concomitant]

REACTIONS (1)
  - RASH PRURITIC [None]
